FAERS Safety Report 8225097-2 (Version None)
Quarter: 2012Q1

REPORT INFORMATION
  Report Type: 
  Country: None (occurrence: None)
  Receive Date: 20120321
  Receipt Date: 20120320
  Transmission Date: 20120608
  Serious: Yes (Death)
  Sender: FDA-Public Use
  Company Number: PHHY2012NL011543

PATIENT
  Sex: Female
  Weight: 80 kg

DRUGS (4)
  1. ZOLEDRONOC ACID [Suspect]
     Indication: OSTEOPOROSIS
     Dosage: 5MG/100ML
     Route: 042
     Dates: start: 20110302
  2. SUTENT [Concomitant]
     Dosage: 25/12.5MG
     Route: 048
     Dates: end: 20111101
  3. TRICYCLIC ANTIDEPRESSANTS [Concomitant]
  4. HYDROCORTISONE [Concomitant]
     Dosage: 10-5-5 MG

REACTIONS (1)
  - NEOPLASM MALIGNANT [None]
